FAERS Safety Report 5407960-0 (Version None)
Quarter: 2007Q3

REPORT INFORMATION
  Report Type: 
  Country: None (occurrence: None)
  Receive Date: 20070803
  Receipt Date: 20070718
  Transmission Date: 20080115
  Serious: Yes (Other)
  Sender: FDA-Public Use
  Company Number: DSA_61644_2007

PATIENT

DRUGS (1)
  1. DIASTAT [Suspect]
     Indication: CONVULSION
     Dosage: (DF)

REACTIONS (1)
  - SOMNOLENCE [None]
